FAERS Safety Report 6479588-5 (Version None)
Quarter: 2009Q4

REPORT INFORMATION
  Report Type: 
  Country: None (occurrence: None)
  Receive Date: 20091207
  Receipt Date: 20091207
  Transmission Date: 20100525
  Serious: No
  Sender: FDA-Public Use
  Company Number: None

PATIENT
  Age: 61 Year
  Sex: Female
  Weight: 72.5755 kg

DRUGS (1)
  1. AMLODIPINE [Suspect]
     Indication: ESSENTIAL HYPERTENSION
     Dosage: 5 MG 1 DAILY
     Dates: start: 20090527, end: 20090621

REACTIONS (17)
  - BALANCE DISORDER [None]
  - DIZZINESS [None]
  - DRY THROAT [None]
  - DYSPNOEA [None]
  - EYE PAIN [None]
  - JOINT SWELLING [None]
  - MUSCLE TIGHTNESS [None]
  - NAUSEA [None]
  - OEDEMA PERIPHERAL [None]
  - OROPHARYNGEAL PAIN [None]
  - PAIN IN EXTREMITY [None]
  - PAIN OF SKIN [None]
  - PARAESTHESIA [None]
  - SELF-INJURIOUS IDEATION [None]
  - SINUS DISORDER [None]
  - SINUS HEADACHE [None]
  - SKIN OEDEMA [None]
